FAERS Safety Report 6216126-6 (Version None)
Quarter: 2009Q2

REPORT INFORMATION
  Report Type: 
  Country: None (occurrence: None)
  Receive Date: 20090605
  Receipt Date: 20090601
  Transmission Date: 20091009
  Serious: Yes (Death, Hospitalization, Other)
  Sender: FDA-Public Use
  Company Number: US-BAYER-200838307NA

PATIENT
  Age: 60 Year
  Sex: Female
  Weight: 66 kg

DRUGS (9)
  1. SORAFENIB [Suspect]
     Indication: GLIOBLASTOMA MULTIFORME
     Dosage: TOTAL DAILY DOSE: 800 MG  UNIT DOSE: 200 MG
     Route: 048
     Dates: start: 20080901, end: 20080929
  2. TEMOZOLOMIDE [Suspect]
     Indication: GLIOBLASTOMA MULTIFORME
     Dosage: TOTAL DAILY DOSE: 150 MG  UNIT DOSE: 75 MG/M2
     Dates: start: 20080901, end: 20081002
  3. KEPPRA [Concomitant]
  4. TYLENOL (CAPLET) [Concomitant]
  5. ZOFRAN [Concomitant]
  6. HYDROCHLOROTHIAZIDE [Concomitant]
  7. DECADRON [Concomitant]
  8. PERCOCET [Concomitant]
  9. OMEPRAZOLE [Concomitant]

REACTIONS (11)
  - ANAEMIA [None]
  - BONE MARROW FAILURE [None]
  - BRONCHOPULMONARY ASPERGILLOSIS [None]
  - CONDITION AGGRAVATED [None]
  - FEBRILE NEUTROPENIA [None]
  - GLIOBLASTOMA MULTIFORME [None]
  - LEUKOPENIA [None]
  - MENTAL STATUS CHANGES [None]
  - PANCYTOPENIA [None]
  - RASH [None]
  - THROMBOCYTOPENIA [None]
